FAERS Safety Report 8857801 (Version 2)
Quarter: 2012Q4

REPORT INFORMATION
  Report Type: 
  Country: FR (occurrence: FR)
  Receive Date: 20121024
  Receipt Date: 20121106
  Transmission Date: 20130627
  Serious: Yes (Hospitalization)
  Sender: FDA-Public Use
  Company Number: FR-GILEAD-2012-0063275

PATIENT
  Age: 49 Year
  Sex: Male

DRUGS (7)
  1. ATRIPLA [Suspect]
     Indication: HIV INFECTION
     Dosage: UNK
     Route: 048
     Dates: start: 2011, end: 20120802
  2. PARACETAMOL [Suspect]
     Indication: PYREXIA
     Dosage: UNK
     Dates: start: 20120716
  3. ASPEGIC [Suspect]
     Indication: PYREXIA
     Dosage: UNK
     Dates: start: 20120716
  4. ACETYLCYSTEINE [Suspect]
     Indication: PRODUCT USED FOR UNKNOWN INDICATION
     Dosage: UNK
     Dates: start: 20120722
  5. ACICLOVIR [Suspect]
     Indication: HEPATITIS VIRAL
     Dosage: UNK
     Route: 048
     Dates: start: 20120722
  6. LAROXYL [Concomitant]
     Indication: PRODUCT USED FOR UNKNOWN INDICATION
  7. SERESTA [Concomitant]
     Indication: PRODUCT USED FOR UNKNOWN INDICATION

REACTIONS (4)
  - Purpura [Not Recovered/Not Resolved]
  - Enanthema [Not Recovered/Not Resolved]
  - Rash maculo-papular [Not Recovered/Not Resolved]
  - Rash pustular [Not Recovered/Not Resolved]
